FAERS Safety Report 9977880 (Version 1)
Quarter: 2014Q1

REPORT INFORMATION
  Report Type: Report from Study
  Country: PR (occurrence: PR)
  Receive Date: 20140306
  Receipt Date: 20140306
  Transmission Date: 20141002
  Serious: No
  Sender: FDA-Public Use
  Company Number: PR-ABBVIE-13P-131-1163522-00

PATIENT
  Sex: Female

DRUGS (1)
  1. HUMIRA [Suspect]
     Indication: PRODUCT USED FOR UNKNOWN INDICATION

REACTIONS (8)
  - Discomfort [Unknown]
  - Diarrhoea [Unknown]
  - Abdominal discomfort [Unknown]
  - Anxiety [Unknown]
  - Panic attack [Unknown]
  - Depression [Unknown]
  - Pruritus generalised [Unknown]
  - Stress [Unknown]
